FAERS Safety Report 7177537-8 (Version None)
Quarter: 2010Q4

REPORT INFORMATION
  Report Type: 
  Country: None (occurrence: None)
  Receive Date: 20101123
  Receipt Date: 20100915
  Transmission Date: 20110411
  Serious: No
  Sender: FDA-Public Use
  Company Number: 018868

PATIENT
  Sex: Male
  Weight: 76.2 kg

DRUGS (6)
  1. CIMZIA [Suspect]
     Indication: CROHN'S DISEASE
     Dosage: (2 INJCETION EVERY 2 WEEKS SUBCUTANEOUS)
     Route: 058
     Dates: start: 20091201
  2. MS CONTIN [Concomitant]
  3. METHOTREXATE [Concomitant]
  4. FOLIC ACID [Concomitant]
  5. NAMENDA [Concomitant]
  6. DILAUDID [Concomitant]

REACTIONS (4)
  - COUGH [None]
  - FEELING COLD [None]
  - OROPHARYNGEAL PAIN [None]
  - PYREXIA [None]
